FAERS Safety Report 8761786 (Version 1)
Quarter: 2012Q4

REPORT INFORMATION
  Report Type: Spontaneous
  Country: US (occurrence: None)
  Receive Date: 20120830
  Receipt Date: 20120830
  Transmission Date: 20130627
  Serious: Yes (Hospitalization, Other)
  Sender: FDA-Public Use
  Company Number: None

PATIENT
  Age: 20 Year
  Sex: Male

DRUGS (3)
  1. LAMICTAL [Suspect]
     Dosage: place 1 tablet on the tongue every morning and 1 tablet at bedtime
     Dates: start: 20120604
  2. SEROQUEL [Concomitant]
  3. VYVANSE [Concomitant]

REACTIONS (1)
  - Epistaxis [None]
